FAERS Safety Report 4795478-8 (Version None)
Quarter: 2005Q4

REPORT INFORMATION
  Report Type: 
  Country: None (occurrence: None)
  Receive Date: 20051006
  Receipt Date: 20051006
  Transmission Date: 20060501
  Serious: Yes (Death)
  Sender: FDA-Public Use
  Company Number: None

PATIENT
  Age: 51 Year
  Sex: Male
  Weight: 104.3273 kg

DRUGS (7)
  1. OXYCONTIN [Suspect]
     Indication: RHEUMATOID ARTHRITIS
     Dosage: 20 MG TWICE A DAY
     Dates: start: 20041109, end: 20050511
  2. CELEBREX [Concomitant]
  3. VICODIN [Concomitant]
  4. VALIUM [Concomitant]
  5. VICOPROFEN [Concomitant]
  6. WELLBUTRIN [Concomitant]
  7. PREDNISONE [Concomitant]

REACTIONS (11)
  - ALCOHOLISM [None]
  - BLOOD ALCOHOL INCREASED [None]
  - CONDITION AGGRAVATED [None]
  - DEPRESSION [None]
  - IMPRISONMENT [None]
  - INTENTIONAL DRUG MISUSE [None]
  - LEGAL PROBLEM [None]
  - LOSS OF EMPLOYMENT [None]
  - MENTAL DISORDER [None]
  - NAUSEA [None]
  - OVERDOSE [None]
